FAERS Safety Report 8273546-6 (Version None)
Quarter: 2012Q2

REPORT INFORMATION
  Report Type: 
  Country: None (occurrence: None)
  Receive Date: 20120411
  Receipt Date: 20111216
  Transmission Date: 20120825
  Serious: No
  Sender: FDA-Public Use
  Company Number: US-TEVA-2011006284

PATIENT
  Sex: Male

DRUGS (3)
  1. NUVIGIL [Suspect]
     Dosage: 375 MILLIGRAM;
     Dates: start: 20110801
  2. NUVIGIL [Suspect]
     Dosage: 250 ;
     Dates: end: 20110701
  3. NUVIGIL [Suspect]
     Indication: NARCOLEPSY
     Dosage: 150 MILLIGRAM;
     Dates: start: 20110301

REACTIONS (2)
  - DRUG TOLERANCE [None]
  - DRUG PRESCRIBING ERROR [None]
